FAERS Safety Report 4983302-X (Version None)
Quarter: 2006Q2

REPORT INFORMATION
  Report Type: 
  Country: None (occurrence: None)
  Receive Date: 20060426
  Receipt Date: 20050503
  Transmission Date: 20061013
  Serious: Yes (Hospitalization)
  Sender: FDA-Public Use
  Company Number: US-MERCK-0505USA00498

PATIENT
  Age: 38 Year
  Sex: Female
  Weight: 84 kg

DRUGS (2)
  1. VIOXX [Suspect]
     Indication: NEUROPATHY
     Route: 048
     Dates: start: 20000201, end: 20010201
  2. TYLENOL (CAPLET) [Concomitant]
     Route: 065

REACTIONS (9)
  - CARDIAC MURMUR [None]
  - DEPRESSION [None]
  - DYSPEPSIA [None]
  - HYPERTENSION [None]
  - INFLUENZA [None]
  - MEMORY IMPAIRMENT [None]
  - MYOCARDIAL INFARCTION [None]
  - OEDEMA [None]
  - PANIC DISORDER [None]
